FAERS Safety Report 13737433 (Version 1)
Quarter: 2017Q3

REPORT INFORMATION
  Report Type: Other
  Country: None (occurrence: US)
  Receive Date: 20170710
  Receipt Date: 20170710
  Transmission Date: 20171127
  Serious: Yes (Other)
  Sender: FDA-Public Use
  Company Number: US-GUTHY-RENKER LLC-2023141

PATIENT
  Age: 14 Year
  Sex: Female

DRUGS (1)
  1. X-OUT WASH-IN TREATMENT [Suspect]
     Active Substance: BENZOYL PEROXIDE
     Route: 061
     Dates: start: 20160226, end: 20160305

REACTIONS (3)
  - Dyspnoea [Recovered/Resolved]
  - Urticaria [None]
  - Swelling [None]

NARRATIVE: CASE EVENT DATE: 20160307
